FAERS Safety Report 12275010 (Version 1)
Quarter: 2016Q2

REPORT INFORMATION
  Report Type: Spontaneous
  Country: US (occurrence: US)
  Receive Date: 20160415
  Receipt Date: 20160415
  Transmission Date: 20160815
  Serious: No
  Sender: FDA-Public Use
  Company Number: US-ALLERGAN-1524275US

PATIENT
  Sex: Male

DRUGS (3)
  1. ALFUZOSIN [Concomitant]
     Active Substance: ALFUZOSIN
  2. VALSARTAN. [Concomitant]
     Active Substance: VALSARTAN
  3. LUMIGAN [Suspect]
     Active Substance: BIMATOPROST
     Indication: INTRAOCULAR PRESSURE INCREASED
     Dosage: UNK
     Dates: start: 201412, end: 201511

REACTIONS (3)
  - Dry throat [Unknown]
  - Dental caries [Unknown]
  - Dry mouth [Recovered/Resolved]
